FAERS Safety Report 14623665 (Version 1)
Quarter: 2018Q1

REPORT INFORMATION
  Report Type: Spontaneous
  Country: US (occurrence: US)
  Receive Date: 20180309
  Receipt Date: 20180309
  Transmission Date: 20180509
  Serious: No
  Sender: FDA-Public Use
  Company Number: None

PATIENT
  Age: 64 Year
  Sex: Male

DRUGS (1)
  1. CYCLOPHOSPHAMIDE CAP 50 MG [Suspect]
     Active Substance: CYCLOPHOSPHAMIDE

REACTIONS (3)
  - Gastrointestinal disorder [None]
  - Diarrhoea [None]
  - Myalgia [None]

NARRATIVE: CASE EVENT DATE: 20180301
